FAERS Safety Report 6439292-6 (Version None)
Quarter: 2009Q4

REPORT INFORMATION
  Report Type: 
  Country: None (occurrence: None)
  Receive Date: 20091113
  Receipt Date: 20091013
  Transmission Date: 20100525
  Serious: No
  Sender: FDA-Public Use
  Company Number: US-BAYER-200930567NA

PATIENT
  Age: 28 Year
  Sex: Female

DRUGS (2)
  1. MIRENA [Suspect]
     Indication: CONTRACEPTION
     Dosage: CONTINUOUS DELIVERY    (MIRENA INSERTED IN APR OR MAY-2009)
     Route: 015
     Dates: start: 20090101
  2. MIRENA [Suspect]
     Dosage: CONTINUOUS
     Route: 015
     Dates: start: 20020101

REACTIONS (8)
  - ABDOMINAL PAIN LOWER [None]
  - AMENORRHOEA [None]
  - BACK PAIN [None]
  - DIZZINESS [None]
  - HEADACHE [None]
  - MOTION SICKNESS [None]
  - VAGINAL HAEMORRHAGE [None]
  - VERTIGO [None]
